FAERS Safety Report 9511826 (Version 1)
Quarter: 2013Q3

REPORT INFORMATION
  Report Type: Spontaneous
  Country: CA (occurrence: CA)
  Receive Date: 20130910
  Receipt Date: 20130910
  Transmission Date: 20140515
  Serious: Yes (Other)
  Sender: FDA-Public Use
  Company Number: CA-ROCHE-1271893

PATIENT
  Age: 15 Year
  Sex: Female

DRUGS (1)
  1. XOLAIR [Suspect]
     Indication: OFF LABEL USE
     Route: 058
     Dates: start: 20130612

REACTIONS (5)
  - Blood pressure decreased [Unknown]
  - Heart rate increased [Unknown]
  - Injection site bruising [Unknown]
  - Skin discolouration [Unknown]
  - Injection site erythema [Unknown]
